FAERS Safety Report 24586221 (Version 1)
Quarter: 2024Q4

REPORT INFORMATION
  Report Type: Report from Study
  Country: US (occurrence: US)
  Receive Date: 20241106
  Receipt Date: 20241106
  Transmission Date: 20250114
  Serious: Yes (Hospitalization, Other)
  Sender: TG THERAPEUTICS
  Company Number: US-TG THERAPEUTICS INC.-TGT004180

PATIENT

DRUGS (2)
  1. UBLITUXIMAB [Suspect]
     Active Substance: UBLITUXIMAB
     Indication: Multiple sclerosis
     Dosage: 150 MILLIGRAM
     Route: 042
     Dates: start: 20241014, end: 20241014
  2. PREDNISONE [Concomitant]
     Active Substance: PREDNISONE
     Indication: Product used for unknown indication
     Dosage: HIGH DOSE

REACTIONS (8)
  - Infusion related reaction [Unknown]
  - Visual impairment [Unknown]
  - Middle ear effusion [Unknown]
  - Photopsia [Unknown]
  - Blindness unilateral [Unknown]
  - Multiple sclerosis [Unknown]
  - Anxiety [Unknown]
  - Swelling face [Unknown]

NARRATIVE: CASE EVENT DATE: 20241001
